FAERS Safety Report 17097062 (Version 1)
Quarter: 2019Q4

REPORT INFORMATION
  Report Type: Spontaneous
  Country: FR (occurrence: FR)
  Receive Date: 20191202
  Receipt Date: 20191202
  Transmission Date: 20200122
  Serious: Yes (Hospitalization)
  Sender: FDA-Public Use
  Company Number: FR-TEVA-2019-FR-1143349

PATIENT
  Age: 68 Year
  Sex: Male
  Weight: 73 kg

DRUGS (2)
  1. APOKINON [Suspect]
     Active Substance: APOMORPHINE
     Dosage: 182 MG
     Route: 058
     Dates: start: 201906, end: 201906
  2. AZILECT [Suspect]
     Active Substance: RASAGILINE MESYLATE
     Indication: PARKINSON^S DISEASE
     Dosage: 1 MG 1 DAYS
     Route: 048
     Dates: end: 20190315

REACTIONS (1)
  - Hallucination, visual [Recovering/Resolving]

NARRATIVE: CASE EVENT DATE: 201901
